FAERS Safety Report 8183554-1 (Version None)
Quarter: 2012Q1

REPORT INFORMATION
  Report Type: 
  Country: None (occurrence: None)
  Receive Date: 20120305
  Receipt Date: 20120224
  Transmission Date: 20120608
  Serious: Yes (Hospitalization, Other)
  Sender: FDA-Public Use
  Company Number: US-BAYER-2011-042033

PATIENT
  Age: 29 Year
  Sex: Female
  Weight: 61 kg

DRUGS (34)
  1. OMEPRAZOLE [Concomitant]
     Dosage: 40 MG, UNK
     Route: 048
     Dates: start: 20100524
  2. NASAL [OXYMETAZOLINE HYDROCHLORIDE] [Concomitant]
     Dosage: UNK
     Route: 045
     Dates: start: 20100524
  3. BIOTIN [Concomitant]
     Dosage: UNK
     Route: 048
     Dates: start: 20100524
  4. ESTRADIOL [Concomitant]
     Dosage: DAILY
  5. GABAPENTIN [Concomitant]
     Indication: ANXIETY
     Dosage: 300 MG, UNK
     Route: 048
     Dates: start: 19970101
  6. SYNTHROID [Concomitant]
     Indication: HYPOTHYROIDISM
     Dosage: UNK
     Dates: start: 20050101
  7. PHENERGAN [Concomitant]
     Dosage: UNK
     Route: 048
     Dates: start: 20100524
  8. NORGESTIMATE AND ETHINYL ESTRADIOL [Concomitant]
     Indication: CONTRACEPTION
     Dosage: UNK
     Dates: start: 20100601
  9. SEASONALE [Concomitant]
  10. HYDROXYCHLOROQUINE SULFATE [Concomitant]
     Indication: RHEUMATOID ARTHRITIS
     Dosage: 200 MG, BID
     Dates: start: 20100524
  11. FOLIC ACID [Concomitant]
     Dosage: 1 MG, UNK
     Dates: start: 20100524
  12. ATARAX [Concomitant]
     Dosage: UNK
     Route: 048
     Dates: start: 20100524
  13. YAZ [Suspect]
     Indication: MENSTRUATION IRREGULAR
  14. TRIAMCINOLONE ACETATE [Concomitant]
     Dosage: UNK
     Route: 061
     Dates: start: 20100426
  15. STOMATOLOGICALS, MOUTH PREPARATIONS [Concomitant]
     Dosage: UNK
     Dates: start: 20100524
  16. CALCIUM D [Concomitant]
     Dosage: UNK
     Route: 048
     Dates: start: 20100524
  17. SEROQUEL [Concomitant]
     Dosage: UNK
     Route: 048
     Dates: start: 20100524
  18. YAZ [Suspect]
     Indication: CONTRACEPTION
     Dosage: UNK
     Dates: start: 20090101, end: 20091201
  19. DROSPIRENONE AND ETHINYL ESTRADIOL [Suspect]
     Indication: CONTRACEPTION
     Dosage: UNK
     Dates: start: 20100101, end: 20100401
  20. TRILEPTAL [Concomitant]
     Indication: ANXIETY
  21. TEGRETOL-XR [Concomitant]
     Dosage: UNK
     Dates: start: 20080101
  22. ADALIMUMAB [Concomitant]
     Dosage: UNK
     Dates: start: 20100303
  23. MOBIC [Concomitant]
     Dosage: UNK
     Route: 048
     Dates: start: 20100524
  24. BENADRYL [Concomitant]
     Dosage: 25 MG, UNK
     Route: 048
     Dates: start: 20100524
  25. DROSPIRENONE AND ETHINYL ESTRADIOL [Suspect]
     Indication: MENSTRUATION IRREGULAR
  26. TRILEPTAL [Concomitant]
     Indication: BIPOLAR DISORDER
     Dosage: 300 MG, UNK
     Dates: start: 20080101
  27. FAMOTIDINE [Concomitant]
     Dosage: 10 MG, UNK
     Route: 048
     Dates: start: 20100524
  28. FISH OIL [Concomitant]
     Dosage: UNK
     Route: 048
     Dates: start: 20100524
  29. FIORICET [Concomitant]
     Dosage: UNK
     Route: 048
     Dates: start: 20100524
  30. MECLIZINE [Concomitant]
     Indication: NAUSEA
     Dosage: 25 MG, UNK
     Dates: start: 20100520
  31. RESTASIS [Concomitant]
     Dosage: 0.05 %, UNK
     Route: 047
     Dates: start: 20100524
  32. BORAGE OIL [Concomitant]
     Dosage: UNK
     Route: 048
     Dates: start: 20100524
  33. ATIVAN [Concomitant]
     Dosage: UNK
     Route: 048
     Dates: start: 20100524
  34. IBUPROFEN [Concomitant]

REACTIONS (7)
  - ABDOMINAL PAIN [None]
  - GASTROINTESTINAL DISORDER [None]
  - INJURY [None]
  - PAIN [None]
  - BILIARY DYSKINESIA [None]
  - CHOLECYSTITIS CHRONIC [None]
  - APPENDICECTOMY [None]
